FAERS Safety Report 7386902-5 (Version None)
Quarter: 2011Q1

REPORT INFORMATION
  Report Type: 
  Country: None (occurrence: None)
  Receive Date: 20110331
  Receipt Date: 20110317
  Transmission Date: 20110831
  Serious: Yes (Hospitalization)
  Sender: FDA-Public Use
  Company Number: US-JNJFOC-20110308229

PATIENT
  Sex: Male
  Weight: 75.7 kg

DRUGS (10)
  1. INFLIXIMAB, RECOMBINANT [Suspect]
     Route: 042
  2. VITAMIN D [Concomitant]
  3. INFLIXIMAB, RECOMBINANT [Suspect]
     Route: 042
  4. MESALAMINE [Concomitant]
     Indication: INFLAMMATORY BOWEL DISEASE
     Route: 048
  5. TRAMADOL [Concomitant]
  6. IRON [Concomitant]
  7. MULTI-VITAMINS [Concomitant]
  8. PREDNISONE [Concomitant]
     Indication: INFLAMMATORY BOWEL DISEASE
  9. PRILOSEC [Concomitant]
  10. INFLIXIMAB, RECOMBINANT [Suspect]
     Indication: CROHN'S DISEASE
     Route: 042

REACTIONS (1)
  - CROHN'S DISEASE [None]
